FAERS Safety Report 6793330-X (Version None)
Quarter: 2010Q2

REPORT INFORMATION
  Report Type: 
  Country: None (occurrence: None)
  Receive Date: 20100624
  Receipt Date: 20091228
  Transmission Date: 20101027
  Serious: Yes (Death)
  Sender: FDA-Public Use
  Company Number: US-MYLANLABS-2009S1020587

PATIENT
  Age: 89 Year
  Sex: Female

DRUGS (3)
  1. CLOZAPINE [Suspect]
     Route: 048
  2. POLYETHYLENE GLYCOL [Concomitant]
     Indication: CONSTIPATION
  3. ANTIHYPERTENSIVES [Concomitant]
     Indication: BLOOD PRESSURE INCREASED

REACTIONS (1)
  - DEATH [None]
